FAERS Safety Report 4775528-5 (Version None)
Quarter: 2005Q3

REPORT INFORMATION
  Report Type: 
  Country: None (occurrence: None)
  Receive Date: 20050922
  Receipt Date: 20050912
  Transmission Date: 20060218
  Serious: Yes (Death)
  Sender: FDA-Public Use
  Company Number: US-JNJFOC-20030906512

PATIENT
  Sex: Male

DRUGS (4)
  1. INFLIXIMAB [Suspect]
     Indication: RHEUMATOID ARTHRITIS
     Route: 042
     Dates: start: 20000906, end: 20010705
  2. CELEBREX [Concomitant]
  3. METHOTREXATE [Concomitant]
  4. PREDNISONE [Concomitant]

REACTIONS (1)
  - ACUTE MYOCARDIAL INFARCTION [None]
